FAERS Safety Report 14475178 (Version 1)
Quarter: 2018Q1

REPORT INFORMATION
  Report Type: Spontaneous
  Country: MA (occurrence: MA)
  Receive Date: 20180201
  Receipt Date: 20180201
  Transmission Date: 20180509
  Serious: Yes (Hospitalization)
  Sender: FDA-Public Use
  Company Number: MA-VALIDUS PHARMACEUTICALS LLC-MA-2018VAL000201

PATIENT
  Age: 17 Year
  Sex: Male

DRUGS (1)
  1. FUROSEMIDE. [Suspect]
     Active Substance: FUROSEMIDE
     Indication: PRODUCT USED FOR UNKNOWN INDICATION
     Dosage: 1 G, QD
     Route: 065

REACTIONS (14)
  - Muscular weakness [Unknown]
  - Oedema peripheral [Unknown]
  - Hypokalaemia [Unknown]
  - Metabolic alkalosis [Unknown]
  - Vomiting [Unknown]
  - Rhabdomyolysis [Unknown]
  - Hyponatraemia [Unknown]
  - Nephrotic syndrome [Unknown]
  - Generalised oedema [Unknown]
  - Swelling face [Unknown]
  - Acute kidney injury [Unknown]
  - Diarrhoea [Unknown]
  - Myalgia [Unknown]
  - Blood creatine phosphokinase increased [Unknown]
